FAERS Safety Report 18072169 (Version 1)
Quarter: 2020Q3

REPORT INFORMATION
  Report Type: Spontaneous
  Country: US (occurrence: US)
  Receive Date: 20200725
  Receipt Date: 20200725
  Transmission Date: 20201103
  Serious: Yes (Other)
  Sender: FDA-Public Use
  Company Number: None

PATIENT
  Age: 73 Year
  Sex: Male
  Weight: 83.7 kg

DRUGS (7)
  1. VITAMIN C [Concomitant]
     Active Substance: ASCORBIC ACID
  2. FLUPHENAZINE [Concomitant]
     Active Substance: FLUPHENAZINE
  3. VITAMIN E [Concomitant]
     Active Substance: .ALPHA.-TOCOPHEROL
  4. BENZTROPINE BESYLATE [Concomitant]
  5. CARBEDILOL [Concomitant]
  6. NONI JUICE [Concomitant]
     Active Substance: NONI FRUIT JUICE
  7. FLUPHENAZINE [Suspect]
     Active Substance: FLUPHENAZINE
     Indication: MOOD ALTERED
     Dosage: ?          QUANTITY:1 TABLET(S);?
     Route: 048
     Dates: start: 20190710

REACTIONS (1)
  - Therapy change [None]

NARRATIVE: CASE EVENT DATE: 20190710
